FAERS Safety Report 12488013 (Version 1)
Quarter: 2016Q2

REPORT INFORMATION
  Report Type: Spontaneous
  Country: GB (occurrence: GB)
  Receive Date: 20160622
  Receipt Date: 20160622
  Transmission Date: 20160815
  Serious: Yes (Disabling)
  Sender: FDA-Public Use
  Company Number: GB-ACTAVIS-2016-12881

PATIENT
  Age: 74 Year
  Sex: Female

DRUGS (1)
  1. ZERLINDA [Suspect]
     Active Substance: ZOLEDRONIC ACID
     Indication: PRODUCT USED FOR UNKNOWN INDICATION
     Dosage: UNKNOWN
     Route: 042
     Dates: start: 20160519

REACTIONS (22)
  - Productive cough [Recovering/Resolving]
  - Chills [Recovering/Resolving]
  - Fatigue [Unknown]
  - Gait disturbance [Recovering/Resolving]
  - Musculoskeletal pain [Recovering/Resolving]
  - Pain in extremity [Recovering/Resolving]
  - Diarrhoea [Recovering/Resolving]
  - Neck pain [Recovering/Resolving]
  - Abdominal pain upper [Recovering/Resolving]
  - Plantar fasciitis [Recovering/Resolving]
  - Myalgia [Recovering/Resolving]
  - Dry mouth [Recovering/Resolving]
  - Pyrexia [Recovering/Resolving]
  - Back pain [Recovering/Resolving]
  - Arthralgia [Recovering/Resolving]
  - Muscle spasms [Recovering/Resolving]
  - Lethargy [Unknown]
  - Sleep disorder [Recovering/Resolving]
  - Malaise [Recovering/Resolving]
  - Decreased appetite [Recovering/Resolving]
  - Headache [Recovering/Resolving]
  - Drug prescribing error [None]
